FAERS Safety Report 25096380 (Version 1)
Quarter: 2025Q1

REPORT INFORMATION
  Report Type: Spontaneous
  Country: US (occurrence: US)
  Receive Date: 20250319
  Receipt Date: 20250319
  Transmission Date: 20250408
  Serious: No
  Sender: PFIZER
  Company Number: US-PFIZER INC-202500059227

PATIENT
  Age: 60 Year
  Sex: Female
  Weight: 77.11 kg

DRUGS (9)
  1. XELJANZ [Suspect]
     Active Substance: TOFACITINIB CITRATE
     Indication: Rheumatoid arthritis
     Dosage: 10 MG, DAILY (5MG TABLET TWO A DAY)
     Route: 048
  2. FLUOXETINE [Concomitant]
     Active Substance: FLUOXETINE HYDROCHLORIDE
     Indication: Obsessive-compulsive disorder
     Dosage: 20 MG, DAILY (20MG CAPSULE ONE A DAY)
     Route: 048
  3. ACETAMINOPHEN\HYDROCODONE BITARTRATE [Concomitant]
     Active Substance: ACETAMINOPHEN\HYDROCODONE BITARTRATE
     Indication: Spinal disorder
     Dosage: UNK UNK, 4X/DAY
     Route: 048
  4. HYDROXYCHLOROQUINE [Concomitant]
     Active Substance: HYDROXYCHLOROQUINE
     Indication: Rheumatoid arthritis
     Dosage: 400 MG, DAILY (200MG TWO TABLETS A DAY)
     Route: 048
  5. NOVOLOG [Concomitant]
     Active Substance: INSULIN ASPART
     Indication: Diabetes mellitus
  6. LISINOPRIL [Concomitant]
     Active Substance: LISINOPRIL
     Indication: Diabetes mellitus
     Dosage: 5 MG, DAILY
     Route: 048
  7. METHADONE [Concomitant]
     Active Substance: METHADONE HYDROCHLORIDE
     Indication: Back disorder
     Dosage: 10 MG, 3X/DAY (10MG ONE TABLET THREE TIMES DAY)
     Route: 048
  8. PANTOPRAZOLE [Concomitant]
     Active Substance: PANTOPRAZOLE
     Indication: Gastrooesophageal reflux disease
     Dosage: 40 MG, DAILY
     Route: 048
  9. SIMVASTATIN [Concomitant]
     Active Substance: SIMVASTATIN
     Indication: Diabetes mellitus
     Dosage: 20 MG, DAILY (20MG ONE TABLET PER DAY)
     Route: 048

REACTIONS (1)
  - Back injury [Unknown]

NARRATIVE: CASE EVENT DATE: 20250314
